FAERS Safety Report 4940101-2 (Version None)
Quarter: 2006Q1

REPORT INFORMATION
  Report Type: 
  Country: None (occurrence: None)
  Receive Date: 20060310
  Receipt Date: 20060110
  Transmission Date: 20060701
  Serious: Yes (Hospitalization)
  Sender: FDA-Public Use
  Company Number: PHHO2006FR00793

PATIENT
  Age: 77 Year
  Sex: Male
  Weight: 71 kg

DRUGS (4)
  1. ICL670A [Suspect]
     Indication: BLOOD IRON INCREASED
     Dosage: 2125 MG DAILY
     Route: 048
     Dates: start: 20051122, end: 20051223
  2. LORAZEPAM [Concomitant]
     Indication: INSOMNIA
     Dosage: 1 MG, QD
     Route: 048
     Dates: start: 19700101
  3. ATENOLOL [Concomitant]
     Indication: HYPERTENSION
     Dosage: 100 MG, BID
     Route: 048
     Dates: start: 19920101
  4. MACROGOL [Concomitant]
     Indication: CONSTIPATION
     Dosage: 2 DAILY
     Route: 048
     Dates: start: 20040101

REACTIONS (5)
  - ABDOMINAL PAIN [None]
  - AGRANULOCYTOSIS [None]
  - DIARRHOEA [None]
  - LUNG DISORDER [None]
  - PYREXIA [None]
